FAERS Safety Report 4821516-X (Version None)
Quarter: 2005Q4

REPORT INFORMATION
  Report Type: 
  Country: None (occurrence: None)
  Receive Date: 20051103
  Receipt Date: 20051017
  Transmission Date: 20060501
  Serious: Yes (Other)
  Sender: FDA-Public Use
  Company Number: USA0510110423

PATIENT
  Age: 61 Year
  Sex: Male

DRUGS (11)
  1. XIGRIS [Suspect]
     Indication: SEPSIS
     Dosage: 24 UG/KG/HR
     Dates: start: 20051006, end: 20051008
  2. CIPROFLOXACIN [Concomitant]
  3. CLINDAMYCIN [Concomitant]
  4. CEFTRIAXONE [Concomitant]
  5. DOPAMINE [Concomitant]
  6. MIDAZOLAM [Concomitant]
  7. NOREPINEPHRINE [Concomitant]
  8. INSULIN [Concomitant]
  9. PANTOPRAZOLE [Concomitant]
  10. HYDROCORTISONE [Concomitant]
  11. LINEZOLID [Concomitant]

REACTIONS (6)
  - CONDITION AGGRAVATED [None]
  - DIALYSIS [None]
  - HAEMOGLOBIN DECREASED [None]
  - OPERATIVE HAEMORRHAGE [None]
  - RENAL FAILURE [None]
  - WOUND HAEMORRHAGE [None]
